FAERS Safety Report 8889409 (Version 1)
Quarter: 2012Q4

REPORT INFORMATION
  Report Type: Spontaneous
  Country: US (occurrence: None)
  Receive Date: 20121102
  Receipt Date: 20121102
  Transmission Date: 20130627
  Serious: Yes (Hospitalization)
  Sender: FDA-Public Use
  Company Number: None

PATIENT
  Age: 81 Year
  Sex: Male
  Weight: 71.5 kg

DRUGS (10)
  1. TEMSIROLIMUS [Suspect]
     Indication: HODGKIN^S DISEASE NODULAR SCLEROSIS
     Route: 041
     Dates: start: 20120712, end: 20121025
  2. ACETAMINOPHEN [Concomitant]
  3. ACYCLOVIR [Concomitant]
  4. ALPRAZOLAM [Concomitant]
  5. ENALAPR:IL [Concomitant]
  6. MEGESTROL ACETATE [Concomitant]
  7. PANTOPRAZOLE [Concomitant]
  8. PREDNISONE [Concomitant]
  9. RANITIDINE -ZANTAC- [Concomitant]
  10. SIMVASTATIN [Concomitant]

REACTIONS (13)
  - Toxicity to various agents [None]
  - Atypical pneumonia [None]
  - Blood creatinine increased [None]
  - Pyrexia [None]
  - Chills [None]
  - Productive cough [None]
  - Sputum discoloured [None]
  - Oedema peripheral [None]
  - Joint swelling [None]
  - Stomatitis [None]
  - Tachycardia [None]
  - Skin discolouration [None]
  - Skin disorder [None]
